FAERS Safety Report 4766237-7 (Version None)
Quarter: 2005Q3

REPORT INFORMATION
  Report Type: 
  Country: None (occurrence: None)
  Receive Date: 20050912
  Receipt Date: 20050609
  Transmission Date: 20060218
  Serious: Yes (Other)
  Sender: FDA-Public Use
  Company Number: US-MERCK-0506USA01878

PATIENT
  Age: 70 Year
  Sex: Male

DRUGS (3)
  1. VIOXX [Suspect]
     Indication: ARTHRITIS
     Route: 048
     Dates: start: 19990101, end: 20040101
  2. LOTREL [Concomitant]
     Indication: HYPERTENSION
     Route: 048
     Dates: start: 19980101
  3. ARICEPT [Concomitant]
     Indication: ARTHRITIS
     Route: 048

REACTIONS (7)
  - CEREBROVASCULAR ACCIDENT [None]
  - CHEST PAIN [None]
  - DRUG HYPERSENSITIVITY [None]
  - HEADACHE [None]
  - OEDEMA PERIPHERAL [None]
  - PHARYNGEAL HAEMORRHAGE [None]
  - THROMBOSIS [None]
